FAERS Safety Report 15584886 (Version 2)
Quarter: 2018Q4

REPORT INFORMATION
  Report Type: Spontaneous
  Country: NO (occurrence: NO)
  Receive Date: 20181102
  Receipt Date: 20181123
  Transmission Date: 20190205
  Serious: Yes (Hospitalization, Other)
  Sender: FDA-Public Use
  Company Number: NO-ASTRAZENECA-2018SF42942

PATIENT
  Age: 705 Month
  Sex: Female

DRUGS (6)
  1. ISOPTIN [Concomitant]
     Active Substance: VERAPAMIL HYDROCHLORIDE
  2. TRULICITY [Concomitant]
     Active Substance: DULAGLUTIDE
  3. PRAVACHOL [Concomitant]
     Active Substance: PRAVASTATIN SODIUM
  4. FORXIGA [Suspect]
     Active Substance: DAPAGLIFLOZIN
     Route: 048
     Dates: start: 20151104
  5. ISOPHANE INSULIN [Concomitant]
     Active Substance: INSULIN NOS
  6. ARCOXIA [Concomitant]
     Active Substance: ETORICOXIB

REACTIONS (3)
  - Glycosuria [Unknown]
  - Urosepsis [Unknown]
  - Pyelonephritis [Unknown]

NARRATIVE: CASE EVENT DATE: 201810
